FAERS Safety Report 6877289-2 (Version None)
Quarter: 2010Q3

REPORT INFORMATION
  Report Type: 
  Country: None (occurrence: None)
  Receive Date: 20100716
  Receipt Date: 20100707
  Transmission Date: 20110219
  Serious: No
  Sender: FDA-Public Use
  Company Number: WSDF_00654

PATIENT
  Sex: Male
  Weight: 112.9457 kg

DRUGS (4)
  1. WINRHO SDF LIQUID [Suspect]
     Indication: IDIOPATHIC THROMBOCYTOPENIC PURPURA
     Dosage: (75 ?G/KG TOTAL INTRAVENOUS (NOT OTHERWISE SPECIFIED))
     Route: 042
     Dates: start: 20070625, end: 20070625
  2. TYLENOL [Concomitant]
  3. BENADRYL [Concomitant]
  4. PREDNISONE [Concomitant]

REACTIONS (13)
  - BACK PAIN [None]
  - CHILLS [None]
  - FATIGUE [None]
  - HAEMOLYSIS [None]
  - HEADACHE [None]
  - INJECTION SITE PAIN [None]
  - MYALGIA [None]
  - OCULAR ICTERUS [None]
  - OVERDOSE [None]
  - PAIN IN EXTREMITY [None]
  - PYREXIA [None]
  - TREMOR [None]
  - URINE COLOUR ABNORMAL [None]
